FAERS Safety Report 9778404 (Version 4)
Quarter: 2014Q1

REPORT INFORMATION
  Report Type: Spontaneous
  Country: JP (occurrence: JP)
  Receive Date: 20131223
  Receipt Date: 20140226
  Transmission Date: 20141002
  Serious: Yes (Hospitalization, Other)
  Sender: FDA-Public Use
  Company Number: JP-B.I. PHARMACEUTICALS,INC./RIDGEFIELD-2013-BI-43185NB

PATIENT
  Age: 83 Year
  Sex: Male
  Weight: 63 kg

DRUGS (11)
  1. PRAZAXA [Suspect]
     Indication: ATRIAL FIBRILLATION
     Dosage: 220 MG
     Route: 048
     Dates: end: 20131217
  2. BAYASPIRIN [Suspect]
     Indication: MYOCARDIAL INFARCTION
     Dosage: 100 MG
     Route: 048
     Dates: end: 20131220
  3. BAYASPIRIN [Suspect]
     Route: 048
  4. BEPRICOR / BEPRIDIL HYDROCHL0 RIDE HYDRATE [Concomitant]
     Indication: ATRIAL FIBRILLATION
     Dosage: 50 MG
     Route: 048
     Dates: start: 201306
  5. CRAVIT / LEVOFLOXACIN HYDRATE [Concomitant]
     Indication: CONJUNCTIVAL HAEMORRHAGE
     Dosage: DAILY DOSE: 1.5%
     Route: 031
  6. VOGLIBOSE / VOGLIBOSE [Concomitant]
     Indication: DIABETES MELLITUS
     Dosage: 0.2 MG
     Route: 048
  7. CRESTOR / ROSUVASTATIN CALCIUM [Concomitant]
     Indication: HYPERLIPIDAEMIA
     Dosage: 2.5 MG
     Route: 048
  8. CARNACULIN / KALLIDINOGENASE [Concomitant]
     Indication: MYOCARDIAL INFARCTION
     Dosage: 50 U
     Route: 048
  9. MAGLAX / MAGNESIUM OXIDE [Concomitant]
     Route: 065
  10. ADONA / CARBAZOCHROME SODIUM SULFONATE HYDRATE [Concomitant]
     Indication: CONJUNCTIVAL HAEMORRHAGE
     Dosage: 30 MG
     Route: 048
  11. ARTIST / CARVEDILOL [Concomitant]
     Indication: MYOCARDIAL INFARCTION
     Dosage: 10 MG
     Route: 048

REACTIONS (2)
  - Pulmonary alveolar haemorrhage [Not Recovered/Not Resolved]
  - Cardiac failure [Not Recovered/Not Resolved]
